FAERS Safety Report 8244370-5 (Version None)
Quarter: 2012Q1

REPORT INFORMATION
  Report Type: 
  Country: None (occurrence: None)
  Receive Date: 20120329
  Receipt Date: 20120321
  Transmission Date: 20120608
  Serious: Yes (Hospitalization)
  Sender: FDA-Public Use
  Company Number: US-JNJFOC-20120311051

PATIENT
  Sex: Male

DRUGS (4)
  1. BORTEZOMIB [Suspect]
     Indication: MULTIPLE MYELOMA
     Route: 042
     Dates: start: 20110426, end: 20110721
  2. DEXAMETHASONE [Suspect]
     Indication: MULTIPLE MYELOMA
     Route: 042
     Dates: start: 20110426, end: 20110621
  3. DEXAMETHASONE [Suspect]
     Route: 048
     Dates: start: 20110426, end: 20110721
  4. DOXIL [Suspect]
     Indication: MULTIPLE MYELOMA
     Route: 042
     Dates: start: 20110426, end: 20110721

REACTIONS (2)
  - BLOOD CREATININE INCREASED [None]
  - CHEST PAIN [None]
